FAERS Safety Report 15406617 (Version 1)
Quarter: 2018Q3

REPORT INFORMATION
  Report Type: Spontaneous
  Country: US (occurrence: US)
  Receive Date: 20180920
  Receipt Date: 20180920
  Transmission Date: 20181010
  Serious: No
  Sender: FDA-Public Use
  Company Number: US-ASTRAZENECA-2018SF17701

PATIENT
  Age: 75 Year
  Sex: Female
  Weight: 58.5 kg

DRUGS (1)
  1. SYMBICORT [Suspect]
     Active Substance: BUDESONIDE\FORMOTEROL FUMARATE DIHYDRATE
     Indication: CHRONIC OBSTRUCTIVE PULMONARY DISEASE
     Dosage: 160/4.5 MCG, TWO PUFFS TWICE DAILY
     Route: 055

REACTIONS (5)
  - Intentional product misuse [Unknown]
  - Diabetes mellitus [Unknown]
  - Device failure [Unknown]
  - Body height decreased [Unknown]
  - Off label use of device [Unknown]

NARRATIVE: CASE EVENT DATE: 2015
